FAERS Safety Report 8536125-9 (Version None)
Quarter: 2012Q3

REPORT INFORMATION
  Report Type: 
  Country: None (occurrence: None)
  Receive Date: 20120725
  Receipt Date: 20120717
  Transmission Date: 20120928
  Serious: Yes (Other)
  Sender: FDA-Public Use
  Company Number: US-ASTELLAS-2012US006296

PATIENT
  Sex: Female
  Weight: 71 kg

DRUGS (10)
  1. EFFEXOR [Concomitant]
     Indication: ANTIDEPRESSANT THERAPY
     Dosage: 37.5 MG, UID/QD
     Route: 048
  2. PROGRAF [Suspect]
     Indication: RENAL TRANSPLANT
     Dosage: 5 MG, BID
     Route: 048
     Dates: start: 20050619
  3. PREDNISONE [Concomitant]
     Indication: RENAL TRANSPLANT
     Dosage: 10 MG, UID/QD
     Route: 048
     Dates: start: 20050619
  4. PANTOPRAZOLE [Concomitant]
     Indication: GASTROINTESTINAL DISORDER THERAPY
     Dosage: 40 MG, UID/QD
     Route: 048
     Dates: start: 20010101
  5. ASPIRIN [Concomitant]
     Indication: ANTICOAGULANT THERAPY
     Dosage: 325 MG, UID/QD
     Route: 048
     Dates: start: 20060101
  6. CELLCEPT [Concomitant]
     Indication: RENAL TRANSPLANT
     Dosage: 250 MG, BID
     Route: 048
     Dates: start: 20050619
  7. METOPROLOL SUCCINATE [Concomitant]
     Indication: BLOOD PRESSURE
     Dosage: 50 MG, UID/QD
     Route: 048
     Dates: start: 20050616
  8. ZOCOR [Concomitant]
     Indication: BLOOD CHOLESTEROL
     Dosage: 20 MG, UID/QD
     Route: 048
     Dates: start: 20010101
  9. GABAPENTIN [Concomitant]
     Indication: NEUROPATHY PERIPHERAL
     Dosage: 300 MG, UID/QD
     Dates: start: 20040101
  10. SULFAMETTHOXAZOLE AND TRIMETHOPRIM [Concomitant]
     Indication: ANTIBIOTIC THERAPY
     Dosage: 400 MG/80 MG Q M-W-F
     Route: 048
     Dates: start: 20050616

REACTIONS (1)
  - PANCREAS TRANSPLANT [None]
